FAERS Safety Report 5556830-6 (Version None)
Quarter: 2007Q4

REPORT INFORMATION
  Report Type: 
  Country: None (occurrence: None)
  Receive Date: 20071211
  Receipt Date: 20071211
  Transmission Date: 20080405
  Serious: Yes (Other)
  Sender: FDA-Public Use
  Company Number: None

PATIENT
  Sex: Female
  Weight: 79.3795 kg

DRUGS (2)
  1. CHANTIX [Suspect]
     Indication: SMOKING CESSATION THERAPY
     Dosage: 1 TAB X 3 DAYS/2 TABLETS X 4 DAILY PO
     Route: 048
     Dates: start: 20070608, end: 20070614
  2. CHANTIX [Suspect]
     Dosage: 2 TABLETS DAILY PO
     Route: 048
     Dates: start: 20070615, end: 20070622

REACTIONS (10)
  - ACTIVITIES OF DAILY LIVING IMPAIRED [None]
  - AMNESIA [None]
  - CONFUSIONAL STATE [None]
  - CRYING [None]
  - DEPRESSION [None]
  - DISORIENTATION [None]
  - FEELING ABNORMAL [None]
  - IMMOBILE [None]
  - SELF INJURIOUS BEHAVIOUR [None]
  - SUICIDAL IDEATION [None]
